FAERS Safety Report 24035809 (Version 8)
Quarter: 2025Q3

REPORT INFORMATION
  Report Type: Spontaneous
  Country: CN (occurrence: CN)
  Receive Date: 20240701
  Receipt Date: 20250702
  Transmission Date: 20251020
  Serious: Yes (Hospitalization, Other)
  Sender: PFIZER
  Company Number: CN-PFIZER INC-PV202400027253

PATIENT
  Age: 29 Year
  Sex: Male

DRUGS (22)
  1. BENEFIX [Suspect]
     Active Substance: COAGULATION FACTOR IX RECOMBINANT HUMAN\ISOPROPYL ALCOHOL
     Indication: Haemophilia
     Dates: start: 20230421
  2. BENEFIX [Suspect]
     Active Substance: COAGULATION FACTOR IX RECOMBINANT HUMAN\ISOPROPYL ALCOHOL
     Dosage: BIW
     Route: 040
     Dates: start: 20230608
  3. BENEFIX [Suspect]
     Active Substance: COAGULATION FACTOR IX RECOMBINANT HUMAN\ISOPROPYL ALCOHOL
     Route: 042
     Dates: start: 20230701
  4. BENEFIX [Suspect]
     Active Substance: COAGULATION FACTOR IX RECOMBINANT HUMAN\ISOPROPYL ALCOHOL
     Route: 040
     Dates: start: 20230731
  5. BENEFIX [Suspect]
     Active Substance: COAGULATION FACTOR IX RECOMBINANT HUMAN\ISOPROPYL ALCOHOL
     Dosage: BIW
     Route: 040
     Dates: start: 20230901
  6. BENEFIX [Suspect]
     Active Substance: COAGULATION FACTOR IX RECOMBINANT HUMAN\ISOPROPYL ALCOHOL
     Route: 040
     Dates: start: 20231002
  7. BENEFIX [Suspect]
     Active Substance: COAGULATION FACTOR IX RECOMBINANT HUMAN\ISOPROPYL ALCOHOL
     Dosage: BIW
     Route: 040
     Dates: start: 20231102
  8. BENEFIX [Suspect]
     Active Substance: COAGULATION FACTOR IX RECOMBINANT HUMAN\ISOPROPYL ALCOHOL
     Route: 040
     Dates: start: 20231227
  9. BENEFIX [Suspect]
     Active Substance: COAGULATION FACTOR IX RECOMBINANT HUMAN\ISOPROPYL ALCOHOL
     Route: 040
     Dates: start: 20240120
  10. BENEFIX [Suspect]
     Active Substance: COAGULATION FACTOR IX RECOMBINANT HUMAN\ISOPROPYL ALCOHOL
     Dosage: 2000 IU, 2X/WEEK
     Route: 041
     Dates: start: 20240222
  11. BENEFIX [Suspect]
     Active Substance: COAGULATION FACTOR IX RECOMBINANT HUMAN\ISOPROPYL ALCOHOL
     Route: 040
     Dates: start: 20240312
  12. BENEFIX [Suspect]
     Active Substance: COAGULATION FACTOR IX RECOMBINANT HUMAN\ISOPROPYL ALCOHOL
     Dosage: QOD
     Route: 040
     Dates: start: 20240413
  13. BENEFIX [Suspect]
     Active Substance: COAGULATION FACTOR IX RECOMBINANT HUMAN\ISOPROPYL ALCOHOL
     Dosage: BIW
     Route: 040
     Dates: start: 20240513
  14. BENEFIX [Suspect]
     Active Substance: COAGULATION FACTOR IX RECOMBINANT HUMAN\ISOPROPYL ALCOHOL
     Dosage: BIW
     Route: 040
     Dates: start: 20240513
  15. BENEFIX [Suspect]
     Active Substance: COAGULATION FACTOR IX RECOMBINANT HUMAN\ISOPROPYL ALCOHOL
     Dosage: BIW
     Route: 040
     Dates: start: 20240617
  16. BENEFIX [Suspect]
     Active Substance: COAGULATION FACTOR IX RECOMBINANT HUMAN\ISOPROPYL ALCOHOL
     Route: 041
     Dates: start: 20241127
  17. BENEFIX [Suspect]
     Active Substance: COAGULATION FACTOR IX RECOMBINANT HUMAN\ISOPROPYL ALCOHOL
     Dosage: QD
     Route: 040
     Dates: start: 20241226
  18. BENEFIX [Suspect]
     Active Substance: COAGULATION FACTOR IX RECOMBINANT HUMAN\ISOPROPYL ALCOHOL
     Route: 041
     Dates: start: 20250123
  19. BENEFIX [Suspect]
     Active Substance: COAGULATION FACTOR IX RECOMBINANT HUMAN\ISOPROPYL ALCOHOL
     Dosage: 2000 IU, 2X/WEEK
     Route: 040
     Dates: start: 20250228
  20. BENEFIX [Suspect]
     Active Substance: COAGULATION FACTOR IX RECOMBINANT HUMAN\ISOPROPYL ALCOHOL
     Route: 041
     Dates: start: 20250329
  21. BENEFIX [Suspect]
     Active Substance: COAGULATION FACTOR IX RECOMBINANT HUMAN\ISOPROPYL ALCOHOL
     Route: 040
     Dates: start: 20250530
  22. BENEFIX [Suspect]
     Active Substance: COAGULATION FACTOR IX RECOMBINANT HUMAN\ISOPROPYL ALCOHOL
     Route: 041
     Dates: start: 20250626

REACTIONS (4)
  - Haemophilic arthropathy [Unknown]
  - Tendinous contracture [Unknown]
  - Drug ineffective [Unknown]
  - Off label use [Unknown]

NARRATIVE: CASE EVENT DATE: 20240222
